FAERS Safety Report 6991856-7 (Version None)
Quarter: 2010Q3

REPORT INFORMATION
  Report Type: 
  Country: None (occurrence: None)
  Receive Date: 20100916
  Receipt Date: 20100916
  Transmission Date: 20110219
  Serious: Yes (Other)
  Sender: FDA-Public Use
  Company Number: None

PATIENT
  Sex: Male

DRUGS (1)
  1. LISINOPRIL [Suspect]
     Indication: DIABETIC NEPHROPATHY
     Dosage: 10MG DAILY PO
     Route: 048
     Dates: start: 20100101

REACTIONS (2)
  - OEDEMA PERIPHERAL [None]
  - SWOLLEN TONGUE [None]
